FAERS Safety Report 16267814 (Version 1)
Quarter: 2019Q2

REPORT INFORMATION
  Report Type: Spontaneous
  Country: US (occurrence: US)
  Receive Date: 20190503
  Receipt Date: 20190503
  Transmission Date: 20190711
  Serious: No
  Sender: FDA-Public Use
  Company Number: US-ASTRAZENECA-2019SE55357

PATIENT
  Age: 4027 Week
  Sex: Female
  Weight: 64.9 kg

DRUGS (9)
  1. FLORASTOR GENERIC [Concomitant]
     Indication: PROBIOTIC THERAPY
     Route: 048
  2. PROVENTIL [Concomitant]
     Active Substance: ALBUTEROL
     Route: 055
  3. LORATADINE. [Concomitant]
     Active Substance: LORATADINE
     Indication: DIZZINESS
     Route: 048
  4. MOMETASONE [Concomitant]
     Active Substance: MOMETASONE
     Indication: HYPERSENSITIVITY
     Route: 045
  5. SYMBICORT [Suspect]
     Active Substance: BUDESONIDE\FORMOTEROL FUMARATE DIHYDRATE
     Indication: CHRONIC OBSTRUCTIVE PULMONARY DISEASE
     Dosage: 160/4.5 MCGM, 2 PUFFS TWICE DAILY
     Route: 055
     Dates: start: 20181031, end: 20181219
  6. SYMBICORT [Suspect]
     Active Substance: BUDESONIDE\FORMOTEROL FUMARATE DIHYDRATE
     Indication: CHRONIC OBSTRUCTIVE PULMONARY DISEASE
     Dosage: 80/4.5 MCGM, 2 PUFFS TWICE DAILY
     Route: 055
     Dates: start: 20181219, end: 201902
  7. VITAMIN D3 [Concomitant]
     Active Substance: CHOLECALCIFEROL
     Indication: VITAMIN D DECREASED
     Route: 048
  8. TYLENOL FOR ARHTH [Concomitant]
     Indication: ARTHRALGIA
     Route: 048
  9. CELEXA [Concomitant]
     Active Substance: CITALOPRAM HYDROBROMIDE
     Indication: DEPRESSION
     Route: 048

REACTIONS (4)
  - Anxiety [Unknown]
  - Off label use [Unknown]
  - Irritability [Unknown]
  - Chronic obstructive pulmonary disease [Unknown]

NARRATIVE: CASE EVENT DATE: 20181219
